FAERS Safety Report 12929414 (Version 1)
Quarter: 2016Q4

REPORT INFORMATION
  Report Type: Spontaneous
  Country: US (occurrence: US)
  Receive Date: 20161110
  Receipt Date: 20161110
  Transmission Date: 20170207
  Serious: Yes (Death, Hospitalization, Other)
  Sender: FDA-Public Use
  Company Number: US-PFIZER INC-3023597

PATIENT
  Age: 65 Year
  Sex: Male
  Weight: 119.59 kg

DRUGS (17)
  1. CYTARABINE. [Suspect]
     Active Substance: CYTARABINE
     Dosage: UNK
     Dates: start: 20150817
  2. MITOXANTRONE HCL [Suspect]
     Active Substance: MITOXANTRONE HYDROCHLORIDE
     Indication: ACUTE MYELOID LEUKAEMIA
     Dosage: UNK
     Dates: start: 20150514
  3. HYDREA [Suspect]
     Active Substance: HYDROXYUREA
     Dosage: 500 MG, DAILY
     Dates: start: 20150619
  4. TYLENOL [Concomitant]
     Active Substance: ACETAMINOPHEN
     Indication: PREMEDICATION
     Dosage: UNK
     Dates: start: 20150724, end: 20150808
  5. HYDREA [Suspect]
     Active Substance: HYDROXYUREA
     Dosage: 500 MG, DAILY
     Dates: start: 20150714
  6. CYTARABINE. [Suspect]
     Active Substance: CYTARABINE
     Dosage: UNK
     Dates: start: 20150514
  7. MYLOTARG [Suspect]
     Active Substance: GEMTUZUMAB OZOGAMICIN
     Indication: ACUTE MYELOID LEUKAEMIA
     Dosage: FREQ: CYCLICAL
     Route: 042
     Dates: start: 20150724, end: 20150813
  8. CLADRIBINE. [Suspect]
     Active Substance: CLADRIBINE
     Indication: ACUTE MYELOID LEUKAEMIA
     Dosage: UNK
     Dates: start: 20150625
  9. DAUNORUBICIN [Suspect]
     Active Substance: DAUNORUBICIN
     Indication: ACUTE MYELOID LEUKAEMIA
     Dosage: UNK
     Dates: start: 20150206, end: 20150213
  10. CYTARABINE. [Suspect]
     Active Substance: CYTARABINE
     Indication: ACUTE MYELOID LEUKAEMIA
     Dosage: UNK
     Dates: start: 20150206, end: 20150213
  11. CYTARABINE. [Suspect]
     Active Substance: CYTARABINE
     Dosage: UNK
     Dates: start: 20150318
  12. DAUNORUBICIN [Suspect]
     Active Substance: DAUNORUBICIN
     Dosage: UNK
     Dates: start: 20150417
  13. DAUNORUBICIN [Suspect]
     Active Substance: DAUNORUBICIN
     Dosage: UNK
     Dates: start: 20150318
  14. ETOPOSIDE. [Suspect]
     Active Substance: ETOPOSIDE
     Indication: ACUTE MYELOID LEUKAEMIA
     Dosage: UNK
     Dates: start: 20150514
  15. BENADRYL [Concomitant]
     Active Substance: DIPHENHYDRAMINE HYDROCHLORIDE
     Indication: PREMEDICATION
     Dosage: UNK
     Dates: start: 20150724, end: 20150808
  16. CYTARABINE. [Suspect]
     Active Substance: CYTARABINE
     Dosage: UNK
     Dates: start: 20150625
  17. HYDREA [Suspect]
     Active Substance: HYDROXYUREA
     Indication: BONE MARROW DISORDER
     Dosage: 2500 MG, FREQ: 2 DAY; INTERVAL: 1

REACTIONS (15)
  - Mitral valve incompetence [Unknown]
  - Hypoxia [Unknown]
  - Febrile neutropenia [Unknown]
  - Bacteraemia [Unknown]
  - Fall [Unknown]
  - Deep vein thrombosis [Unknown]
  - Disease progression [Fatal]
  - Leukaemia recurrent [Unknown]
  - Thrombocytopenia [Unknown]
  - Enterococcal infection [Unknown]
  - Disseminated intravascular coagulation [Unknown]
  - Haematoma [Unknown]
  - Myalgia [Unknown]
  - Interstitial lung disease [Unknown]
  - Pulmonary embolism [Unknown]

NARRATIVE: CASE EVENT DATE: 20150201
